FAERS Safety Report 21255245 (Version 2)
Quarter: 2022Q3

REPORT INFORMATION
  Report Type: Spontaneous
  Country: FR (occurrence: FR)
  Receive Date: 20220825
  Receipt Date: 20220916
  Transmission Date: 20221027
  Serious: Yes (Death, Other)
  Sender: FDA-Public Use
  Company Number: FR-TEVA-2022-FR-2067052

PATIENT
  Age: 29 Year
  Sex: Male

DRUGS (8)
  1. URSODIOL [Suspect]
     Active Substance: URSODIOL
     Indication: Cholangitis sclerosing
     Route: 065
     Dates: start: 2016
  2. MYCOPHENOLATE MOFETIL [Suspect]
     Active Substance: MYCOPHENOLATE MOFETIL
     Indication: Cholangitis sclerosing
     Dosage: LOW DOSE
     Route: 065
     Dates: start: 2016
  3. MYCOPHENOLATE MOFETIL [Suspect]
     Active Substance: MYCOPHENOLATE MOFETIL
     Indication: Immunosuppressant drug therapy
  4. PREDNISONE [Suspect]
     Active Substance: PREDNISONE
     Indication: Immunosuppressant drug therapy
     Dosage: 5 MILLIGRAM DAILY;
     Route: 065
  5. PREDNISONE [Suspect]
     Active Substance: PREDNISONE
     Indication: Cholangitis sclerosing
  6. TACROLIMUS [Suspect]
     Active Substance: TACROLIMUS
     Indication: Immunosuppressant drug therapy
     Dosage: DOSAGE: RESIDUAL LEVEL 3-8NG/ML
     Route: 065
  7. TACROLIMUS [Suspect]
     Active Substance: TACROLIMUS
     Indication: Cholangitis sclerosing
  8. INFLIXIMAB [Suspect]
     Active Substance: INFLIXIMAB
     Indication: Pouchitis
     Dosage: RECEIVED 2 CYCLES
     Route: 065
     Dates: start: 2016

REACTIONS (5)
  - Cholangiocarcinoma [Fatal]
  - Metastases to lung [Fatal]
  - Metastases to peritoneum [Fatal]
  - Metastases to skin [Fatal]
  - Treatment failure [Unknown]
